FAERS Safety Report 13343498 (Version 1)
Quarter: 2017Q1

REPORT INFORMATION
  Report Type: Spontaneous
  Country: US (occurrence: US)
  Receive Date: 20170316
  Receipt Date: 20170316
  Transmission Date: 20170428
  Serious: Yes (Other)
  Sender: FDA-Public Use
  Company Number: US-BAYER-2017-046091

PATIENT
  Sex: Female

DRUGS (2)
  1. ACETYLSALICYLIC ACID({=100 MG) [Suspect]
     Active Substance: ASPIRIN
     Indication: HYPERCOAGULATION
     Dosage: UNK
     Route: 048
  2. HEPARIN [Interacting]
     Active Substance: HEPARIN SODIUM

REACTIONS (6)
  - Subchorionic haemorrhage [None]
  - Labelled drug-drug interaction medication error [None]
  - Contraindicated product administered [None]
  - Off label use [None]
  - Exposure during pregnancy [None]
  - Drug administration error [None]
